FAERS Safety Report 13737923 (Version 1)
Quarter: 2017Q3

REPORT INFORMATION
  Report Type: Spontaneous
  Country: DE (occurrence: DE)
  Receive Date: 20170710
  Receipt Date: 20170710
  Transmission Date: 20171127
  Serious: Yes (Life-Threatening, Hospitalization)
  Sender: FDA-Public Use
  Company Number: DE-TEVA-782454GER

PATIENT
  Age: 56 Year
  Sex: Male
  Weight: 92 kg

DRUGS (5)
  1. CLONIDIN RETARD [Concomitant]
     Dosage: 250 MILLIGRAM DAILY;
  2. CARVEDILOL. [Concomitant]
     Active Substance: CARVEDILOL
     Dosage: 25 MILLIGRAM DAILY;
  3. METFORMIN [Suspect]
     Active Substance: METFORMIN HYDROCHLORIDE
     Indication: TYPE 2 DIABETES MELLITUS
     Dosage: 1000 MILLIGRAM DAILY;
     Dates: end: 201611
  4. AMLODIPIN [Concomitant]
     Active Substance: AMLODIPINE BESYLATE
     Dosage: 10 MILLIGRAM DAILY;
  5. MOXONIDIN [Concomitant]
     Active Substance: MOXONIDINE
     Dosage: .6 MILLIGRAM DAILY;

REACTIONS (1)
  - Coma [Unknown]

NARRATIVE: CASE EVENT DATE: 201611
